FAERS Safety Report 18163087 (Version 3)
Quarter: 2020Q3

REPORT INFORMATION
  Report Type: Spontaneous
  Country: US (occurrence: US)
  Receive Date: 20200818
  Receipt Date: 20200824
  Transmission Date: 20201103
  Serious: Yes (Other)
  Sender: FDA-Public Use
  Company Number: US-GLAXOSMITHKLINE-US2020AMR159336

PATIENT
  Sex: Female

DRUGS (2)
  1. ZEJULA [Suspect]
     Active Substance: NIRAPARIB
     Dosage: 200 MG, QD
     Route: 048
     Dates: start: 20200810
  2. ZEJULA [Suspect]
     Active Substance: NIRAPARIB
     Indication: OVARIAN CANCER
     Dosage: UNK
     Dates: start: 20200804

REACTIONS (6)
  - Neuropathy peripheral [Unknown]
  - Hypertension [Recovered/Resolved]
  - Therapeutic response unexpected [Unknown]
  - Hot flush [Unknown]
  - Musculoskeletal stiffness [Recovering/Resolving]
  - Night sweats [Unknown]
